FAERS Safety Report 12213354 (Version 3)
Quarter: 2016Q2

REPORT INFORMATION
  Report Type: Spontaneous
  Country: GB (occurrence: GB)
  Receive Date: 20160328
  Receipt Date: 20160607
  Transmission Date: 20160815
  Serious: Yes (Death, Other)
  Sender: FDA-Public Use
  Company Number: GB-ACCORD-039080

PATIENT
  Age: 40 Year
  Sex: Female

DRUGS (4)
  1. ZOPICLONE [Concomitant]
     Active Substance: ZOPICLONE
     Indication: INSOMNIA
     Dosage: AT NIGHT (OCCASSIONAL USE)
     Route: 048
  2. SERTRALINE [Suspect]
     Active Substance: SERTRALINE HYDROCHLORIDE
     Indication: BIPOLAR DISORDER
     Dosage: THERAPY OF 25MG FROM 8-DEC-2015 TO JAN-2016, THEN 50MG FROM JAN-2016; ON 15-FEB-2016 AT 25MG OR 50MG
     Dates: start: 20151208
  3. PARACETAMOL [Suspect]
     Active Substance: ACETAMINOPHEN
     Indication: PRODUCT USED FOR UNKNOWN INDICATION
     Dosage: OVERDOSE
  4. ABILIFY [Suspect]
     Active Substance: ARIPIPRAZOLE
     Indication: BIPOLAR DISORDER
     Route: 048
     Dates: start: 201509, end: 20160308

REACTIONS (4)
  - Completed suicide [Fatal]
  - Suicide attempt [Unknown]
  - Intentional overdose [Unknown]
  - Intentional overdose [Fatal]

NARRATIVE: CASE EVENT DATE: 20160205
